FAERS Safety Report 16140830 (Version 1)
Quarter: 2019Q2

REPORT INFORMATION
  Report Type: Spontaneous
  Country: FR (occurrence: FR)
  Receive Date: 20190401
  Receipt Date: 20190401
  Transmission Date: 20190711
  Serious: Yes (Other)
  Sender: FDA-Public Use
  Company Number: FR-INTERCEPT-PM2019000499

PATIENT
  Age: 46 Year
  Sex: Female
  Weight: 76.5 kg

DRUGS (4)
  1. OCALIVA [Suspect]
     Active Substance: OBETICHOLIC ACID
     Indication: PRIMARY BILIARY CHOLANGITIS
     Route: 048
     Dates: start: 20190111, end: 20190222
  2. DELURSAN [Concomitant]
     Active Substance: URSODIOL
     Dosage: UNK
  3. PLAQUENIL [Suspect]
     Active Substance: HYDROXYCHLOROQUINE SULFATE
     Indication: MUSCULOSKELETAL PAIN
     Route: 048
     Dates: start: 20190111, end: 20190222
  4. CERAZETTE [Concomitant]
     Dosage: ()

REACTIONS (3)
  - Erythromelalgia [Recovered/Resolved]
  - Rash pruritic [Not Recovered/Not Resolved]
  - Prurigo [Not Recovered/Not Resolved]

NARRATIVE: CASE EVENT DATE: 20190113
